FAERS Safety Report 25369657 (Version 2)
Quarter: 2025Q3

REPORT INFORMATION
  Report Type: Spontaneous
  Country: US (occurrence: US)
  Receive Date: 20250528
  Receipt Date: 20250813
  Transmission Date: 20251021
  Serious: Yes (Hospitalization, Other)
  Sender: ALEMBIC
  Company Number: US-ALEMBIC PHARMACUETICALS LIMITED-2025SCAL000529

PATIENT

DRUGS (2)
  1. QUETIAPINE FUMARATE [Suspect]
     Active Substance: QUETIAPINE FUMARATE
     Indication: Product used for unknown indication
     Route: 065
  2. IBUPROFEN [Suspect]
     Active Substance: IBUPROFEN
     Indication: Product used for unknown indication
     Route: 065

REACTIONS (9)
  - Anticholinergic syndrome [Unknown]
  - Toxicity to various agents [Unknown]
  - Mucosal dryness [Unknown]
  - Flushing [Unknown]
  - Urinary retention [Unknown]
  - Tachycardia [Unknown]
  - Agitation [Unknown]
  - Delirium [Unknown]
  - Intentional overdose [Unknown]
